FAERS Safety Report 13942156 (Version 1)
Quarter: 2017Q3

REPORT INFORMATION
  Report Type: Spontaneous
  Country: US (occurrence: None)
  Receive Date: 20170907
  Receipt Date: 20170907
  Transmission Date: 20171127
  Serious: No
  Sender: FDA-Public Use
  Company Number: None

PATIENT
  Age: 36 Year
  Sex: Male

DRUGS (1)
  1. ZEPATIER [Suspect]
     Active Substance: ELBASVIR\GRAZOPREVIR
     Dosage: 50MG-100MG 1 TAB QD PO
     Route: 048

REACTIONS (3)
  - Hypoxia [None]
  - Headache [None]
  - Asthma [None]

NARRATIVE: CASE EVENT DATE: 20170827
